FAERS Safety Report 13042534 (Version 1)
Quarter: 2016Q4

REPORT INFORMATION
  Report Type: Not Available
  Country: BR (occurrence: BR)
  Receive Date: 20161219
  Receipt Date: 20161219
  Transmission Date: 20170207
  Serious: Yes (Other)
  Sender: FDA-Public Use
  Company Number: BR-AKORN-45790

PATIENT
  Age: 18 Month
  Sex: Female

DRUGS (1)
  1. COSOPT [Suspect]
     Active Substance: DORZOLAMIDE HYDROCHLORIDE\TIMOLOL MALEATE

REACTIONS (4)
  - Liquid product physical issue [Unknown]
  - Intraocular pressure increased [Recovered/Resolved]
  - Off label use [Unknown]
  - Intraocular pressure test abnormal [Unknown]

NARRATIVE: CASE EVENT DATE: 20161128
